FAERS Safety Report 12592474 (Version 2)
Quarter: 2016Q3

REPORT INFORMATION
  Report Type: Spontaneous
  Country: GB (occurrence: GB)
  Receive Date: 20160726
  Receipt Date: 20160729
  Transmission Date: 20161109
  Serious: Yes (Hospitalization)
  Sender: FDA-Public Use
  Company Number: GB-JNJFOC-20160712495

PATIENT
  Age: 57 Year
  Sex: Female
  Weight: 49.8 kg

DRUGS (5)
  1. LANSOPRAZOLE. [Concomitant]
     Active Substance: LANSOPRAZOLE
     Indication: PRODUCT USED FOR UNKNOWN INDICATION
     Dosage: 30 DOSE (UNITS UNSPECIFIED), ONCE A DAY IN THE MORNING
     Route: 065
  2. PARACETAMOL [Suspect]
     Active Substance: ACETAMINOPHEN
     Route: 065
  3. THIAMIN [Concomitant]
     Active Substance: THIAMINE
     Indication: PRODUCT USED FOR UNKNOWN INDICATION
     Dosage: DOSE: 100 (UNITS UNSPECIFIED), TWICE A DAY.
     Route: 065
  4. PARACETAMOL [Suspect]
     Active Substance: ACETAMINOPHEN
     Indication: PAIN
     Dosage: DOSE: 500 (UNITS UNSPECIFIED). 15/20 TABLETS FOR A COUPLE OF WEEKS.
     Route: 065
  5. LIBRIUM [Concomitant]
     Active Substance: CHLORDIAZEPOXIDE HYDROCHLORIDE
     Indication: ALCOHOL ABUSE
     Dosage: DOSAGE: REDUCING REGIME
     Route: 065

REACTIONS (4)
  - Overdose [Unknown]
  - Gamma-glutamyltransferase increased [Unknown]
  - Blood potassium decreased [Unknown]
  - Vomiting [Recovered/Resolved]
